FAERS Safety Report 7501682-8 (Version None)
Quarter: 2011Q2

REPORT INFORMATION
  Report Type: 
  Country: None (occurrence: None)
  Receive Date: 20110525
  Receipt Date: 20110511
  Transmission Date: 20111010
  Serious: Yes (Death)
  Sender: FDA-Public Use
  Company Number: PT-MYLANLABS-2011S1010004

PATIENT
  Age: 17 Year
  Sex: Male

DRUGS (11)
  1. TACROLIMUS [Suspect]
     Indication: PROPHYLAXIS AGAINST GRAFT VERSUS HOST DISEASE
     Route: 065
  2. PREDNISONE [Suspect]
     Route: 048
  3. AMIKACIN [Suspect]
     Indication: FEBRILE NEUTROPENIA
     Route: 065
  4. FLUCONAZOLE [Concomitant]
     Indication: ANTIFUNGAL PROPHYLAXIS
     Dosage: 400 MG/DAY
     Route: 065
  5. METHOTREXATE [Suspect]
     Indication: PROPHYLAXIS AGAINST GRAFT VERSUS HOST DISEASE
     Route: 065
  6. POSACONAZOLE [Interacting]
     Indication: ANTIFUNGAL PROPHYLAXIS
     Route: 065
  7. TACROLIMUS [Suspect]
     Indication: GRAFT VERSUS HOST DISEASE
     Route: 065
  8. PIPERACILLIN AND TAZOBACTAM [Suspect]
     Indication: FEBRILE NEUTROPENIA
     Route: 065
  9. CLINDAMYCIN [Suspect]
     Indication: PYREXIA
     Route: 065
  10. POSACONAZOLE [Interacting]
     Route: 065
  11. PREDNISONE [Suspect]
     Indication: GRAFT VERSUS HOST DISEASE
     Route: 065

REACTIONS (7)
  - ENCEPHALITIS FUNGAL [None]
  - FUNGAL INFECTION [None]
  - FEBRILE NEUTROPENIA [None]
  - SCEDOSPORIUM INFECTION [None]
  - DRUG LEVEL DECREASED [None]
  - LUNG INFECTION [None]
  - DRUG INTERACTION [None]
